FAERS Safety Report 7932994 (Version 1)
Quarter: 2020Q3

REPORT INFORMATION
  Report Type: Spontaneous
  Country: AT (occurrence: AT)
  Receive Date: 20110506
  Receipt Date: 20110506
  Transmission Date: 20201105
  Serious: Yes (Other)
  Sender: FDA-Public Use
  Company Number: PHHY2011AT36686

PATIENT
  Age: 75 Year
  Sex: Female

DRUGS (2)
  1. IBANDRONIC ACID. [Suspect]
     Active Substance: IBANDRONIC ACID
     Indication: BREAST CANCER
     Dosage: UNK
  2. ZOMETA [Suspect]
     Active Substance: ZOLEDRONIC ACID
     Indication: BREAST CANCER
     Dosage: 4 MG, QMO
     Route: 042
     Dates: start: 2005

REACTIONS (1)
  - Osteonecrosis of jaw [Unknown]
